FAERS Safety Report 9263186 (Version 1)
Quarter: 2013Q2

REPORT INFORMATION
  Report Type: Spontaneous
  Country: CN (occurrence: CN)
  Receive Date: 20130430
  Receipt Date: 20130430
  Transmission Date: 20140414
  Serious: Yes (Other)
  Sender: FDA-Public Use
  Company Number: CN-JNJFOC-20130414696

PATIENT
  Age: 16 Year
  Sex: Female

DRUGS (14)
  1. ITRACONAZOLE [Suspect]
     Indication: PHAEHYPHOMYCOSIS
     Route: 048
     Dates: start: 200204
  2. ITRACONAZOLE [Suspect]
     Indication: PHAEHYPHOMYCOSIS
     Dosage: DRURATION: 5 MONTHS
     Route: 048
     Dates: start: 199806, end: 199810
  3. ITRACONAZOLE [Suspect]
     Indication: CRYPTOCOCCOSIS
     Route: 048
     Dates: start: 200204
  4. ITRACONAZOLE [Suspect]
     Indication: CRYPTOCOCCOSIS
     Dosage: DRURATION: 5 MONTHS
     Route: 048
     Dates: start: 199806, end: 199810
  5. ITRACONAZOLE [Suspect]
     Indication: PHAEHYPHOMYCOSIS
     Dosage: DURATION: 14 DAYS
     Route: 042
     Dates: start: 200208
  6. ITRACONAZOLE [Suspect]
     Indication: PHAEHYPHOMYCOSIS
     Dosage: DRURATION: 14 DAYS
     Route: 042
     Dates: start: 200604
  7. ITRACONAZOLE [Suspect]
     Indication: PHAEHYPHOMYCOSIS
     Dosage: CONTINUALLY
     Route: 065
     Dates: start: 201105
  8. TERBINAFINE [Suspect]
     Indication: PHAEHYPHOMYCOSIS
     Dosage: CONTINUALLY
     Route: 048
     Dates: start: 199903
  9. TERBINAFINE [Suspect]
     Indication: PHAEHYPHOMYCOSIS
     Dosage: DURATION: 2 MONTHS
     Route: 048
     Dates: start: 199901
  10. TERBINAFINE [Suspect]
     Indication: PHAEHYPHOMYCOSIS
     Dosage: CONTINUALLY
     Route: 065
     Dates: start: 201105
  11. AMPHOTERICIN B [Suspect]
     Indication: PHAEHYPHOMYCOSIS
     Dosage: DURATION: 1 MONTH
     Route: 042
     Dates: start: 199811
  12. AMPHOTERICIN B [Suspect]
     Indication: PHAEHYPHOMYCOSIS
     Dosage: DURATION: 1 MONTH
     Route: 042
     Dates: start: 200912
  13. AMPHOTERICIN B [Suspect]
     Indication: PHAEHYPHOMYCOSIS
     Dosage: DURATION: 2 MONTHS
     Route: 026
     Dates: start: 199901
  14. VORICONAZOLE [Suspect]
     Indication: PHAEHYPHOMYCOSIS
     Dosage: DURATION: 14 DAYS
     Route: 042
     Dates: start: 200605

REACTIONS (9)
  - Red blood cell count decreased [Unknown]
  - Phaehyphomycosis [Recovering/Resolving]
  - Therapeutic response decreased [Recovering/Resolving]
  - Deformity [Unknown]
  - Haemoglobin decreased [Unknown]
  - Haematocrit decreased [Unknown]
  - White blood cell count decreased [Unknown]
  - Lymphocyte count increased [Unknown]
  - Exposure during pregnancy [Recovered/Resolved]
